FAERS Safety Report 4677982-6 (Version None)
Quarter: 2005Q3

REPORT INFORMATION
  Report Type: 
  Country: None (occurrence: None)
  Receive Date: 20050531
  Receipt Date: 20040929
  Transmission Date: 20060218
  Serious: Yes (Other)
  Sender: FDA-Public Use
  Company Number: 2004GB02337

PATIENT
  Age: 65 Year
  Sex: Male
  Weight: 85 kg

DRUGS (15)
  1. GEFITINIB [Suspect]
     Indication: PROSTATE CANCER
     Route: 048
     Dates: start: 20040512, end: 20040929
  2. GEFITINIB [Interacting]
     Route: 048
     Dates: start: 20041007
  3. DIFENE [Interacting]
     Route: 048
     Dates: start: 20040924, end: 20040924
  4. ACETAMINOPHEN W/ CODEINE [Suspect]
     Route: 048
     Dates: start: 20040924, end: 20040924
  5. TAMSULOSIN [Concomitant]
     Dosage: ONGOING AT STUDY START
     Route: 048
  6. ATORVASTATIN [Concomitant]
     Dosage: ONGOING AT STUDY START
     Route: 048
  7. DOTHIEPIN HYDROCHLORIDE [Concomitant]
     Dosage: ONGOING AT STUDY START
     Route: 048
  8. ISOSORBIDE MONONITRATE [Concomitant]
     Indication: ANGINA PECTORIS
     Dosage: ONGOING AT STUDY START
     Route: 048
  9. SALMETEROL/FLUTICASONE [Concomitant]
     Dosage: ONGOING AT STUDY START
     Route: 055
  10. TERBUTALINE [Concomitant]
     Indication: EMPHYSEMA
     Dosage: ONGOING AT STUDY START
     Route: 055
  11. ASPIRIN [Concomitant]
     Dosage: ONGOING AT STUDY START
  12. ALPRAZOLAM [Concomitant]
     Dates: start: 20040519
  13. TOLERAINE [Concomitant]
     Route: 061
     Dates: start: 20040809
  14. ZOLADEX [Concomitant]
     Indication: PROSTATE CANCER
     Route: 058
     Dates: start: 20040517
  15. CASODEX [Concomitant]
     Indication: PROSTATE CANCER
     Route: 048
     Dates: start: 20040512

REACTIONS (4)
  - DRUG INTERACTION [None]
  - DYSPNOEA [None]
  - FALL [None]
  - FATIGUE [None]
